APPROVED DRUG PRODUCT: PENTAMIDINE ISETHIONATE
Active Ingredient: PENTAMIDINE ISETHIONATE
Strength: 300MG/VIAL
Dosage Form/Route: INJECTABLE;INJECTION
Application: A206666 | Product #001 | TE Code: AP
Applicant: SETON PHARMACEUTICALS LLC
Approved: Sep 28, 2017 | RLD: No | RS: No | Type: RX